FAERS Safety Report 26122128 (Version 3)
Quarter: 2025Q4

REPORT INFORMATION
  Report Type: Report from Study
  Country: CA (occurrence: CA)
  Receive Date: 20251204
  Receipt Date: 20251210
  Transmission Date: 20260117
  Serious: Yes (Hospitalization, Other)
  Sender: PFIZER
  Company Number: CA-PFIZER INC-202500210193

PATIENT
  Age: 55 Year
  Sex: Female
  Weight: 96 kg

DRUGS (7)
  1. SULFASALAZINE [Suspect]
     Active Substance: SULFASALAZINE
     Dosage: 1 DF
  2. ADVIL [Concomitant]
     Active Substance: IBUPROFEN
     Dosage: UNK
  3. HUMIRA [Concomitant]
     Active Substance: ADALIMUMAB
     Dosage: UNK
  4. TRAMADOL [Concomitant]
     Active Substance: TRAMADOL
     Dosage: UNK
  5. TYLENOL [Concomitant]
     Active Substance: ACETAMINOPHEN
     Dosage: UNK
  6. IXIFI [Concomitant]
     Active Substance: INFLIXIMAB-QBTX
     Indication: Ankylosing spondylitis
     Dosage: 500 MG EVERY 6 WEEKS
     Route: 042
     Dates: start: 20250926
  7. IXIFI [Concomitant]
     Active Substance: INFLIXIMAB-QBTX
     Dosage: 500 MG EVERY 6 WEEKS
     Route: 042
     Dates: start: 20251202

REACTIONS (2)
  - Pulmonary embolism [Recovered/Resolved with Sequelae]
  - Knee arthroplasty [Recovered/Resolved with Sequelae]

NARRATIVE: CASE EVENT DATE: 20250101
